FAERS Safety Report 8917475 (Version 1)
Quarter: 2012Q4

REPORT INFORMATION
  Report Type: 
  Country: US (occurrence: US)
  Receive Date: 20121120
  Receipt Date: 20121120
  Transmission Date: 20130627
  Serious: Yes (Other)
  Sender: FDA-Public Use
  Company Number: US-PFIZER INC-2012288310

PATIENT
  Age: 70 Year
  Sex: Female
  Weight: 68.03 kg

DRUGS (2)
  1. XALKORI [Suspect]
     Indication: LUNG CANCER METASTATIC
     Dosage: UNK
     Dates: start: 201109, end: 201112
  2. TYLENOL [Concomitant]
     Indication: ARTHRITIC PAINS
     Dosage: UNK

REACTIONS (3)
  - Female genital tract fistula [Unknown]
  - Aphagia [Unknown]
  - Diarrhoea [Unknown]
